FAERS Safety Report 9643443 (Version 1)
Quarter: 2013Q4

REPORT INFORMATION
  Report Type: Spontaneous
  Country: US (occurrence: US)
  Receive Date: 20131024
  Receipt Date: 20131024
  Transmission Date: 20140711
  Serious: No
  Sender: FDA-Public Use
  Company Number: US-BAYER-2013-129219

PATIENT
  Age: 86 Year
  Sex: Female
  Weight: 98 kg

DRUGS (3)
  1. ALEVE CAPLET [Suspect]
     Indication: ARTHRITIS
     Dosage: 2 DF, QD
     Route: 048
     Dates: start: 201309, end: 20131021
  2. ATIVAN [Concomitant]
  3. TRIAMTERENE [Concomitant]

REACTIONS (1)
  - Incorrect drug administration duration [None]
